FAERS Safety Report 20430285 (Version 1)
Quarter: 2022Q1

REPORT INFORMATION
  Report Type: Report from Study
  Country: FR (occurrence: FR)
  Receive Date: 20220204
  Receipt Date: 20220204
  Transmission Date: 20220424
  Serious: Yes (Hospitalization, Other)
  Sender: FDA-Public Use
  Company Number: FR-SERVIER-S20005374

PATIENT

DRUGS (11)
  1. PEGASPARGASE [Suspect]
     Active Substance: PEGASPARGASE
     Indication: Acute lymphocytic leukaemia
     Dosage: 162,5 IU ( D4)
     Route: 042
     Dates: start: 20200424, end: 20200424
  2. VINCRISTINE SULFATE [Suspect]
     Active Substance: VINCRISTINE SULFATE
     Indication: Acute lymphocytic leukaemia
     Dosage: 2 MG D1 D8 D15 AND D22
     Route: 042
     Dates: start: 20200421, end: 20200511
  3. DOXORUBICIN HYDROCHLORIDE [Suspect]
     Active Substance: DOXORUBICIN HYDROCHLORIDE
     Indication: Acute lymphocytic leukaemia
     Dosage: 46 MG D1, D8, D15 AND D22
     Dates: start: 20200421, end: 20200511
  4. METHOTREXATE [Suspect]
     Active Substance: METHOTREXATE
     Indication: Acute lymphocytic leukaemia
     Dosage: 15 MG  (D4, D31)
     Route: 037
     Dates: start: 20200424, end: 20200520
  5. CYTARABINE [Suspect]
     Active Substance: CYTARABINE
     Indication: Acute lymphocytic leukaemia
     Dosage: 30 MG  (D4 D31)
     Route: 037
     Dates: start: 20200424, end: 20200520
  6. CYTARABINE [Suspect]
     Active Substance: CYTARABINE
     Dosage: 115 MG  (D31-34, D38)
     Route: 042
     Dates: start: 20200520
  7. HYDROCORTISONE [Suspect]
     Active Substance: HYDROCORTISONE
     Indication: Acute lymphocytic leukaemia
     Dosage: 15 MG  (D4 D34)
     Route: 037
     Dates: start: 20200424, end: 20200520
  8. CYCLOPHOSPHAMIDE [Suspect]
     Active Substance: CYCLOPHOSPHAMIDE
     Indication: Acute lymphocytic leukaemia
     Dosage: 1560 MG  D29
     Route: 042
     Dates: start: 20200518, end: 20200518
  9. DEXAMETHASONE SODIUM PHOSPHATE [Suspect]
     Active Substance: DEXAMETHASONE SODIUM PHOSPHATE
     Indication: Acute lymphocytic leukaemia
     Dosage: 10 MG (D1 TO D7, D15 TO D21)
     Route: 048
     Dates: start: 20200421, end: 20200510
  10. THIOGUANINE [Suspect]
     Active Substance: THIOGUANINE
     Indication: Acute lymphocytic leukaemia
     Dosage: 100 MG  (D29 TO D42)
     Dates: start: 20200518
  11. ERWINASE [Suspect]
     Active Substance: ASPARAGINASE ERWINIA CHRYSANTHEMI
     Indication: Acute lymphocytic leukaemia
     Dosage: 3000 MG  (D8 TO D22)
     Route: 042
     Dates: start: 20200428, end: 20200511

REACTIONS (2)
  - Anal inflammation [Recovered/Resolved]
  - Hypersensitivity [Recovered/Resolved]

NARRATIVE: CASE EVENT DATE: 20200424
